FAERS Safety Report 6854235-9 (Version None)
Quarter: 2010Q3

REPORT INFORMATION
  Report Type: 
  Country: None (occurrence: None)
  Receive Date: 20100717
  Receipt Date: 20071227
  Transmission Date: 20110219
  Serious: No
  Sender: FDA-Public Use
  Company Number: US-PFIZER INC-2008000772

PATIENT
  Sex: Female
  Weight: 68.2 kg

DRUGS (3)
  1. CHANTIX [Suspect]
     Indication: SMOKING CESSATION THERAPY
     Route: 048
     Dates: start: 20071116, end: 20071209
  2. LIPITOR [Concomitant]
     Route: 048
     Dates: start: 19940101
  3. TOPROL-XL [Concomitant]
     Route: 048

REACTIONS (1)
  - DEPRESSION [None]
